FAERS Safety Report 8719261 (Version 2)
Quarter: 2013Q4

REPORT INFORMATION
  Report Type: Spontaneous
  Country: US (occurrence: US)
  Receive Date: 20120813
  Receipt Date: 20131101
  Transmission Date: 20140711
  Serious: No
  Sender: FDA-Public Use
  Company Number: US-009507513-1208USA000461

PATIENT
  Age: 48 Year
  Sex: Female

DRUGS (10)
  1. VICTRELIS [Suspect]
     Indication: HEPATITIS C
     Dosage: 800 MG, TID
     Dates: start: 201203
  2. PEGASYS [Suspect]
  3. RIBASPHERE [Suspect]
  4. GABAPENTIN [Concomitant]
  5. ZOMIG [Concomitant]
  6. CYMBALTA [Concomitant]
  7. CHOLECALCIFEROL [Concomitant]
  8. PREMARIN [Concomitant]
  9. ALPRAZOLAM [Concomitant]
  10. TYLENOL [Concomitant]
     Dosage: UNK, PRN

REACTIONS (1)
  - Depressive symptom [Not Recovered/Not Resolved]
